FAERS Safety Report 8310687-9 (Version None)
Quarter: 2012Q2

REPORT INFORMATION
  Report Type: 
  Country: None (occurrence: None)
  Receive Date: 20120425
  Receipt Date: 20120418
  Transmission Date: 20120825
  Serious: Yes (Hospitalization, Other)
  Sender: FDA-Public Use
  Company Number: JP-PFIZER INC-2012095601

PATIENT
  Age: 74 Year
  Sex: Female
  Weight: 47.7 kg

DRUGS (1)
  1. HYDROCORTISONE [Suspect]
     Dosage: 100 MG DAILY
     Dates: start: 20110826

REACTIONS (3)
  - CRANIOPHARYNGIOMA [None]
  - DIABETES INSIPIDUS [None]
  - STRESS CARDIOMYOPATHY [None]
